FAERS Safety Report 15814338 (Version 9)
Quarter: 2019Q2

REPORT INFORMATION
  Report Type: Report from Study
  Country: US (occurrence: US)
  Receive Date: 20190111
  Receipt Date: 20190611
  Transmission Date: 20190711
  Serious: Yes (Hospitalization, Other)
  Sender: FDA-Public Use
  Company Number: US-TESARO-2018-TSO2610-US

PATIENT
  Age: 57 Year
  Sex: Female
  Weight: 81 kg

DRUGS (4)
  1. ZEJULA [Suspect]
     Active Substance: NIRAPARIB
     Indication: OVARIAN CANCER
     Dosage: 300 MG, QAM WITH AND WITHOUT FOOD
     Route: 048
     Dates: start: 20181217, end: 201901
  2. ZEJULA [Suspect]
     Active Substance: NIRAPARIB
     Dosage: 300 MG, QD
     Route: 048
     Dates: start: 2019
  3. ZEJULA [Suspect]
     Active Substance: NIRAPARIB
     Dosage: 200 MG, QAM WITH FOOD
     Route: 048
  4. VITAMIN D3 [Concomitant]
     Active Substance: CHOLECALCIFEROL
     Indication: PRODUCT USED FOR UNKNOWN INDICATION
     Dosage: UNK

REACTIONS (15)
  - Haematocrit decreased [Unknown]
  - White blood cell count decreased [Unknown]
  - Heart rate increased [Unknown]
  - Insomnia [Not Recovered/Not Resolved]
  - Platelet count decreased [Recovered/Resolved]
  - Laboratory test abnormal [Recovered/Resolved]
  - Nausea [Not Recovered/Not Resolved]
  - Hypoxia [Not Recovered/Not Resolved]
  - Dizziness [Recovering/Resolving]
  - Fatigue [Not Recovered/Not Resolved]
  - Dyspnoea [Not Recovered/Not Resolved]
  - Haemoglobin decreased [Unknown]
  - Ventilation perfusion mismatch [Unknown]
  - Neutrophil count decreased [Recovered/Resolved]
  - Red blood cell count decreased [Unknown]

NARRATIVE: CASE EVENT DATE: 201812
